FAERS Safety Report 7152772-3 (Version None)
Quarter: 2010Q4

REPORT INFORMATION
  Report Type: 
  Country: None (occurrence: None)
  Receive Date: 20101123
  Receipt Date: 20101109
  Transmission Date: 20110411
  Serious: Yes (Hospitalization)
  Sender: FDA-Public Use
  Company Number: 2010004980

PATIENT
  Age: 76 Year
  Sex: Female

DRUGS (1)
  1. TARCEVA [Suspect]
     Indication: LUNG ADENOCARCINOMA
     Dosage: (150 MG, 1 IN 1 D), ORAL
     Route: 048
     Dates: start: 20100914, end: 20100927

REACTIONS (2)
  - JAUNDICE [None]
  - PANCYTOPENIA [None]
